FAERS Safety Report 4362102-8 (Version None)
Quarter: 2004Q2

REPORT INFORMATION
  Report Type: 
  Country: None (occurrence: None)
  Receive Date: 20040519
  Receipt Date: 20040519
  Transmission Date: 20050107
  Serious: No
  Sender: FDA-Public Use
  Company Number: None

PATIENT
  Age: 49 Year
  Sex: Male
  Weight: 86.1834 kg

DRUGS (8)
  1. CARBOPLATIN [Suspect]
     Indication: NON-SMALL CELL LUNG CANCER
     Dosage: AUC (I.V.) 2.0 #4 OF 6 WKLY PLANNED DURING R.T.
     Route: 042
  2. TAXOL [Concomitant]
  3. ANZEMET [Concomitant]
  4. DECADRON [Concomitant]
  5. PEPCID [Concomitant]
  6. BENADRYL [Concomitant]
  7. ATIVAN [Concomitant]
  8. BENADRYL [Concomitant]

REACTIONS (2)
  - COUGH [None]
  - HYPERSENSITIVITY [None]
